FAERS Safety Report 5322207-1 (Version None)
Quarter: 2007Q2

REPORT INFORMATION
  Report Type: 
  Country: None (occurrence: None)
  Receive Date: 20070511
  Receipt Date: 20070502
  Transmission Date: 20071010
  Serious: Yes (Hospitalization)
  Sender: FDA-Public Use
  Company Number: IT-ROCHE-489203

PATIENT
  Age: 54 Year
  Sex: Male

DRUGS (6)
  1. MYCOPHENOLATE MOFETIL [Suspect]
     Route: 048
     Dates: start: 20070217
  2. FK506 [Suspect]
     Route: 048
     Dates: start: 20070217, end: 20070223
  3. FK506 [Suspect]
     Route: 048
     Dates: start: 20070223
  4. FK506 [Suspect]
     Route: 048
     Dates: start: 20070226, end: 20070227
  5. FK506 [Suspect]
     Route: 048
     Dates: start: 20070305, end: 20070306
  6. FK506 [Suspect]
     Route: 048
     Dates: start: 20070309, end: 20070309

REACTIONS (6)
  - AGITATION [None]
  - ALTERED STATE OF CONSCIOUSNESS [None]
  - DELIRIUM [None]
  - HALLUCINATION [None]
  - NEUROTOXICITY [None]
  - TREMOR [None]
